FAERS Safety Report 7265586-0 (Version None)
Quarter: 2011Q1

REPORT INFORMATION
  Report Type: 
  Country: None (occurrence: None)
  Receive Date: 20110131
  Receipt Date: 20101216
  Transmission Date: 20110831
  Serious: Yes (Other)
  Sender: FDA-Public Use
  Company Number: US-BAYER-201014243NA

PATIENT
  Sex: Female
  Weight: 95.455 kg

DRUGS (29)
  1. RHINOCORT [Concomitant]
     Dates: start: 20050101
  2. NSAID'S [Concomitant]
  3. ANTIBIOTICS [Concomitant]
     Dosage: SPORADIC
  4. THYROID THERAPY [Concomitant]
     Dates: start: 19980901
  5. ONDANSETRON [Concomitant]
     Route: 042
     Dates: start: 20080201, end: 20080201
  6. NALBUPHINE [Concomitant]
     Route: 042
     Dates: start: 20080201, end: 20080201
  7. YASMIN [Suspect]
     Route: 048
     Dates: start: 20071129, end: 20080210
  8. HYDROMORPHONE HCL [Concomitant]
     Route: 030
     Dates: start: 20080201, end: 20080201
  9. MAGNESIUM HYDROXIDE [Concomitant]
     Dates: start: 20080201, end: 20080201
  10. PATANOL [Concomitant]
     Route: 047
     Dates: start: 20010101
  11. ASCORBIC ACID [Concomitant]
     Dosage: OCCASIONAL FOR COLD SEASON
  12. ACETAMINOPHEN [Concomitant]
     Dates: start: 20080206, end: 20080210
  13. PERCOCET [Concomitant]
     Route: 048
     Dates: start: 20080201, end: 20080201
  14. LORATADINE [Concomitant]
  15. HYDROMORPHONE HCL [Concomitant]
     Route: 042
     Dates: start: 20080201, end: 20080201
  16. COLACE [Concomitant]
     Route: 065
     Dates: start: 20080201, end: 20080201
  17. MECLIZINE [Concomitant]
     Indication: DIZZINESS
     Route: 065
     Dates: start: 20080801
  18. NASONEX [Concomitant]
     Dates: start: 20010101, end: 20040101
  19. VICODIN [Concomitant]
     Route: 048
     Dates: start: 20080201
  20. MULTI-VITAMIN [Concomitant]
  21. SENOKOT [Concomitant]
     Route: 065
     Dates: start: 20080201, end: 20080201
  22. UNKNOWN DRUG [Concomitant]
     Route: 054
     Dates: start: 20080201, end: 20080201
  23. YASMIN [Suspect]
     Indication: CEREBRAL THROMBOSIS
     Route: 048
     Dates: start: 20021201, end: 20051201
  24. LEVOTHYROXINE SODIUM [Concomitant]
     Dates: start: 19980101
  25. FLEXERIL [Concomitant]
     Route: 065
     Dates: start: 20080201, end: 20080201
  26. DIPHENHYDRAMINE [Concomitant]
     Route: 042
     Dates: start: 20080201, end: 20080201
  27. NALOXONE [Concomitant]
     Route: 042
     Dates: start: 20080201, end: 20080201
  28. DEMEROL [Concomitant]
     Route: 065
     Dates: start: 20080201, end: 20080201
  29. REGLAN [Concomitant]
     Route: 042
     Dates: start: 20080201, end: 20080201

REACTIONS (16)
  - OEDEMA [None]
  - INJURY [None]
  - STRESS [None]
  - VISUAL IMPAIRMENT [None]
  - HEADACHE [None]
  - MUSCULOSKELETAL DISCOMFORT [None]
  - FEAR [None]
  - COGNITIVE DISORDER [None]
  - DIZZINESS [None]
  - VERTIGO [None]
  - VOMITING [None]
  - HAEMORRHAGIC TRANSFORMATION STROKE [None]
  - ANXIETY [None]
  - PANIC REACTION [None]
  - CEREBRAL VENOUS THROMBOSIS [None]
  - CEREBRAL THROMBOSIS [None]
